FAERS Safety Report 15566673 (Version 1)
Quarter: 2018Q4

REPORT INFORMATION
  Report Type: Spontaneous
  Country: US (occurrence: US)
  Receive Date: 20181025
  Receipt Date: 20181025
  Transmission Date: 20190205
  Serious: No
  Sender: FDA-Public Use
  Company Number: None

PATIENT
  Age: 56 Year
  Sex: Female

DRUGS (3)
  1. TACROLIMUS CAP 1MG [Suspect]
     Active Substance: TACROLIMUS
     Route: 048
     Dates: start: 201702
  2. AZATHIOPRIN [Suspect]
     Active Substance: AZATHIOPRINE
     Dates: start: 20170206
  3. PANTOPRAZOLE [Suspect]
     Active Substance: PANTOPRAZOLE
     Dates: start: 20170206

REACTIONS (1)
  - Anaemia [None]

NARRATIVE: CASE EVENT DATE: 20181024
